FAERS Safety Report 25913942 (Version 2)
Quarter: 2025Q4

REPORT INFORMATION
  Report Type: Spontaneous
  Country: EU (occurrence: EU)
  Receive Date: 20251013
  Receipt Date: 20251103
  Transmission Date: 20260117
  Serious: Yes (Other)
  Sender: ASCEND THERAPEUTICS US, LLC
  Company Number: EU-Ascend Therapeutics US, LLC-2186451

PATIENT
  Age: 51 Year
  Sex: Female

DRUGS (6)
  1. ESTROGEL [Suspect]
     Active Substance: ESTRADIOL
     Indication: Hormone replacement therapy
     Dates: start: 2022
  2. ESTRADIOL [Suspect]
     Active Substance: ESTRADIOL
     Dates: start: 2022
  3. STROVAC [Concomitant]
     Active Substance: ESCHERICHIA COLI\ENTEROCOCCUS FAECALIS\KLEBSIELLA PNEUMONIAE\PROTEUS MIRABILIS\PROTEUS MORGANII
  4. MIRENA [Concomitant]
     Active Substance: LEVONORGESTREL
     Dates: start: 2018
  5. PROGESTERONE [Suspect]
     Active Substance: PROGESTERONE
     Dates: start: 2024
  6. ESTRADIOL [Suspect]
     Active Substance: ESTRADIOL

REACTIONS (6)
  - Postmenopausal haemorrhage [Recovered/Resolved]
  - Therapeutic product effect decreased [Unknown]
  - Product prescribing error [Unknown]
  - Prescribed underdose [Unknown]
  - Blood pressure increased [Recovered/Resolved]
  - Angina pectoris [Unknown]

NARRATIVE: CASE EVENT DATE: 20240101
